FAERS Safety Report 7655818-9 (Version None)
Quarter: 2011Q3

REPORT INFORMATION
  Report Type: 
  Country: None (occurrence: None)
  Receive Date: 20110801
  Receipt Date: 20110725
  Transmission Date: 20111222
  Serious: Yes (Hospitalization)
  Sender: FDA-Public Use
  Company Number: DKLU1072182

PATIENT
  Age: 7 Month
  Sex: Female

DRUGS (3)
  1. ACTH [Concomitant]
  2. TOPAMAX [Concomitant]
  3. SABRIL [Suspect]
     Indication: INFANTILE SPASMS
     Dosage: 3.5 ML MILLILITRE(S), 2 IN 1 D, ORAL
     Route: 048
     Dates: start: 20110329

REACTIONS (2)
  - MENINGITIS [None]
  - SEPSIS [None]
